FAERS Safety Report 9048924 (Version 1)
Quarter: 2013Q1

REPORT INFORMATION
  Report Type: Spontaneous
  Country: PL (occurrence: PL)
  Receive Date: 20130204
  Receipt Date: 20130204
  Transmission Date: 20140127
  Serious: Yes (Hospitalization)
  Sender: FDA-Public Use
  Company Number: PL-JNJFOC-20130112897

PATIENT
  Age: 67 Year
  Sex: Male
  Weight: 85 kg

DRUGS (4)
  1. DUROGESIC [Suspect]
     Indication: PAIN
     Route: 062
     Dates: start: 20130113, end: 20130120
  2. DUROGESIC [Suspect]
     Indication: PAIN
     Route: 062
     Dates: start: 201212, end: 20130113
  3. KETOCONAZOLE [Concomitant]
     Indication: PAIN
     Dosage: FOR 3 MONTHS
     Route: 065
  4. RELANIUM [Concomitant]
     Route: 065

REACTIONS (3)
  - Altered state of consciousness [Not Recovered/Not Resolved]
  - Renal failure [Not Recovered/Not Resolved]
  - Memory impairment [Not Recovered/Not Resolved]
